FAERS Safety Report 7420609-0 (Version None)
Quarter: 2011Q2

REPORT INFORMATION
  Report Type: 
  Country: None (occurrence: None)
  Receive Date: 20110418
  Receipt Date: 20110411
  Transmission Date: 20111010
  Serious: Yes (Disabling, Other)
  Sender: FDA-Public Use
  Company Number: IE-ROCHE-241671

PATIENT
  Sex: Male

DRUGS (1)
  1. LARIAM [Suspect]
     Indication: MALARIA PROPHYLAXIS
     Route: 048
     Dates: start: 19960828

REACTIONS (19)
  - MYALGIA [None]
  - ARTHRALGIA [None]
  - RESTLESSNESS [None]
  - NAUSEA [None]
  - PALPITATIONS [None]
  - DIZZINESS [None]
  - NIGHTMARE [None]
  - DRY THROAT [None]
  - SUICIDAL IDEATION [None]
  - ANXIETY DISORDER [None]
  - INSOMNIA [None]
  - ALCOHOL INTOLERANCE [None]
  - VERTIGO [None]
  - HYPOTENSION [None]
  - FATIGUE [None]
  - VISUAL IMPAIRMENT [None]
  - VESTIBULAR DISORDER [None]
  - TINNITUS [None]
  - DEPRESSION [None]
